FAERS Safety Report 8591266-5 (Version None)
Quarter: 2012Q3

REPORT INFORMATION
  Report Type: 
  Country: None (occurrence: None)
  Receive Date: 20120814
  Receipt Date: 20120807
  Transmission Date: 20120928
  Serious: Yes (Hospitalization)
  Sender: FDA-Public Use
  Company Number: AR-AMGEN-ARGSP2012048629

PATIENT
  Age: 70 Year
  Sex: Female

DRUGS (6)
  1. ENBREL [Suspect]
     Indication: RHEUMATOID ARTHRITIS
     Dosage: 50 MG ONCE EVERY TEN DAYS
     Route: 058
     Dates: start: 20090814
  2. LOSARTAN POTASSIUM [Concomitant]
     Dosage: UNK
  3. ATENOLOL [Concomitant]
     Dosage: UNK
  4. VITAMINS                           /00067501/ [Concomitant]
     Dosage: UNK
  5. PREDNISONE TAB [Concomitant]
     Dosage: UNK
  6. ENBREL [Suspect]
     Dosage: 50 MG ONCE EVERY TEN DAYS
     Route: 058
     Dates: start: 20090814, end: 20110112

REACTIONS (2)
  - LIGAMENT SPRAIN [None]
  - FALL [None]
